FAERS Safety Report 25239758 (Version 1)
Quarter: 2025Q2

REPORT INFORMATION
  Report Type: Spontaneous
  Country: US (occurrence: US)
  Receive Date: 20250425
  Receipt Date: 20250425
  Transmission Date: 20250716
  Serious: No
  Sender: BAUSCH AND LOMB
  Company Number: US-BAUSCH-BL-2025-005081

PATIENT
  Age: 75 Year
  Sex: Female

DRUGS (2)
  1. EFUDEX [Suspect]
     Active Substance: FLUOROURACIL
     Indication: Actinic keratosis
     Route: 061
     Dates: start: 202412
  2. EFUDEX [Suspect]
     Active Substance: FLUOROURACIL
     Route: 061
     Dates: start: 2025

REACTIONS (4)
  - Scab [Unknown]
  - Skin ulcer haemorrhage [Unknown]
  - Onycholysis [Unknown]
  - Nail discolouration [Unknown]

NARRATIVE: CASE EVENT DATE: 20250101
